FAERS Safety Report 10928869 (Version 1)
Quarter: 2015Q1

REPORT INFORMATION
  Report Type: Spontaneous
  Country: CA (occurrence: None)
  Receive Date: 20150317
  Receipt Date: 20150317
  Transmission Date: 20150721
  Serious: Yes (Hospitalization)
  Sender: FDA-Public Use
  Company Number: None

PATIENT
  Age: 67 Year
  Sex: Male
  Weight: 80.5 kg

DRUGS (1)
  1. CISPLATIN. [Suspect]
     Active Substance: CISPLATIN
     Dates: end: 20140812

REACTIONS (8)
  - General physical health deterioration [None]
  - Tremor [None]
  - Laryngeal disorder [None]
  - Dehydration [None]
  - Vomiting [None]
  - Asthenia [None]
  - Nausea [None]
  - Superinfection [None]

NARRATIVE: CASE EVENT DATE: 20140824
